FAERS Safety Report 8492977-2 (Version None)
Quarter: 2012Q3

REPORT INFORMATION
  Report Type: 
  Country: None (occurrence: None)
  Receive Date: 20120706
  Receipt Date: 20120625
  Transmission Date: 20120928
  Serious: Yes (Hospitalization, Other)
  Sender: FDA-Public Use
  Company Number: DE-JNJFOC-20120414041

PATIENT
  Sex: Female
  Weight: 140 kg

DRUGS (5)
  1. NOVALGIN [Concomitant]
     Indication: PRODUCT USED FOR UNKNOWN INDICATION
     Route: 048
     Dates: start: 20120208
  2. AMITRIPTYLINE HCL [Suspect]
     Indication: PRODUCT USED FOR UNKNOWN INDICATION
     Route: 048
     Dates: start: 20120101, end: 20120420
  3. GABAPENTIN [Concomitant]
     Indication: PRODUCT USED FOR UNKNOWN INDICATION
     Route: 048
     Dates: start: 20120208
  4. LEVOMEPROMAZINE MALEATE [Concomitant]
     Indication: PRODUCT USED FOR UNKNOWN INDICATION
     Route: 048
     Dates: end: 20120208
  5. PALEXIA RETARD [Suspect]
     Indication: PAIN
     Route: 048
     Dates: start: 20120101, end: 20120420

REACTIONS (11)
  - HYPERTENSION [None]
  - TACHYCARDIA [None]
  - CHEST PAIN [None]
  - ARRHYTHMIA [None]
  - FATIGUE [None]
  - RESTLESSNESS [None]
  - DIARRHOEA [None]
  - HYPERHIDROSIS [None]
  - NAUSEA [None]
  - SLEEP DISORDER [None]
  - SEROTONIN SYNDROME [None]
